FAERS Safety Report 20357700 (Version 1)
Quarter: 2022Q1

REPORT INFORMATION
  Report Type: Spontaneous
  Country: US (occurrence: None)
  Receive Date: 20220120
  Receipt Date: 20220120
  Transmission Date: 20220423
  Serious: Yes (Other)
  Sender: FDA-Public Use
  Company Number: None

PATIENT
  Age: 55 Year
  Sex: Female

DRUGS (22)
  1. CASIRIVIMAB\IMDEVIMAB [Suspect]
     Active Substance: CASIRIVIMAB\IMDEVIMAB
     Indication: COVID-19
     Dosage: OTHER FREQUENCY : ONCE;?
     Route: 058
     Dates: start: 20220105, end: 20220105
  2. acetaminophen (TYLENOL) 650 mg 8 hr tablet [Concomitant]
  3. albuterol HFA 90 mcg/actuation inhaler [Concomitant]
  4. amitriptyline (ELAVIL) 25 mg tablet [Concomitant]
  5. clotrimazole-betamethasone (LOTRISONE) 1-0.05 % cream [Concomitant]
  6. diclofenac sodium (VOLTAREN) 1 % topical gel [Concomitant]
  7. diphenoxylate-atropine (LomotiL) 2.5-0.025 mg per tablet (C-V) [Concomitant]
  8. dulaglutide (Trulicity) 1.5 mg/0.5 mL pen injector [Concomitant]
  9. DULoxetine (CYMBALTA) 20 mg capsule [Concomitant]
  10. empagliflozin (Jardiance) 25 mg tablet [Concomitant]
  11. halobetasol (ULTRAVATE) 0.05 % cream [Concomitant]
  12. ipratropium-albuteroL (DUONEB) 0.5-2.5 mg/3 mL nebulizer solution [Concomitant]
  13. lisinopriL-hydrochlorothiazide (ZESTORETIC) 10-12.5 mg per tablet [Concomitant]
  14. meloxicam (MOBIC) 15 mg tablet [Concomitant]
  15. mupirocin (BACTROBAN) 2 % ointment [Concomitant]
  16. omeprazole (PriLOSEC) 20 mg capsule [Concomitant]
  17. pioglitazone (Actos) 15 mg tablet [Concomitant]
  18. pravastatin (PRAVACHOL) 10 mg tablet [Concomitant]
  19. Symbicort 80-4.5 mcg/actuation inhaler [Concomitant]
  20. ondansetron (ZOFRAN) 4 mg tablet [Concomitant]
  21. azithromycin (Zithromax Z-Pak) 250 mg tablet [Concomitant]
  22. predniSONE (DELTASONE) 20 mg tablet [Concomitant]

REACTIONS (6)
  - Abdominal discomfort [None]
  - Nausea [None]
  - Vomiting [None]
  - Diarrhoea [None]
  - Loss of personal independence in daily activities [None]
  - Impaired work ability [None]

NARRATIVE: CASE EVENT DATE: 20220111
